FAERS Safety Report 5177352-0 (Version None)
Quarter: 2006Q4

REPORT INFORMATION
  Report Type: 
  Country: None (occurrence: None)
  Receive Date: 20061207
  Receipt Date: 20061128
  Transmission Date: 20070319
  Serious: Yes (Hospitalization, Other)
  Sender: FDA-Public Use
  Company Number: 2006144138

PATIENT
  Age: 36 Year
  Sex: Female
  Weight: 62 kg

DRUGS (1)
  1. DEPO-PROVERA SUSPENSION/INJ [Suspect]
     Indication: CONTRACEPTION
     Dosage: 150 MG (150 MG, SINGLE INJECTION), INTRAMUSCULAR
     Route: 030
     Dates: start: 20060905, end: 20060905

REACTIONS (5)
  - AMENORRHOEA [None]
  - DIABETES MELLITUS INADEQUATE CONTROL [None]
  - HAEMORRHOIDS [None]
  - VAGINAL INFECTION [None]
  - VAGINAL NEOPLASM [None]
